FAERS Safety Report 8900501 (Version 1)
Quarter: 2012Q4

REPORT INFORMATION
  Report Type: 
  Country: US (occurrence: US)
  Receive Date: 20121108
  Receipt Date: 20121108
  Transmission Date: 20130627
  Serious: No
  Sender: FDA-Public Use
  Company Number: US-AMGEN-USASP2012032681

PATIENT
  Age: 60 Year
  Sex: Female

DRUGS (4)
  1. ENBREL [Suspect]
     Indication: RHEUMATOID ARTHRITIS
     Dosage: 50 mg, qwk
     Dates: start: 20110603
  2. ENBREL [Suspect]
     Indication: CREST SYNDROME
  3. ENBREL [Suspect]
     Indication: CREST SYNDROME
  4. IMURAN                             /00001501/ [Concomitant]
     Dosage: UNK

REACTIONS (9)
  - CREST syndrome [Unknown]
  - Nausea [Unknown]
  - Drug effect incomplete [Not Recovered/Not Resolved]
  - Oedema peripheral [Recovered/Resolved]
  - Bone pain [Recovered/Resolved]
  - Mobility decreased [Recovered/Resolved]
  - Vomiting [Recovered/Resolved]
  - Diarrhoea [Recovered/Resolved]
  - Herpes zoster [Not Recovered/Not Resolved]
